FAERS Safety Report 7305752-9 (Version None)
Quarter: 2011Q1

REPORT INFORMATION
  Report Type: 
  Country: None (occurrence: None)
  Receive Date: 20110222
  Receipt Date: 20110216
  Transmission Date: 20110831
  Serious: No
  Sender: FDA-Public Use
  Company Number: B0697665A

PATIENT
  Age: 12 Year
  Sex: Female

DRUGS (2)
  1. RELENZA [Suspect]
     Indication: INFLUENZA
     Dosage: 10MG PER DAY
     Route: 055
     Dates: start: 20110125, end: 20110127
  2. MUCODYNE [Concomitant]
     Route: 048

REACTIONS (3)
  - EMOTIONAL DISORDER [None]
  - INFLUENZA [None]
  - NIGHTMARE [None]
